FAERS Safety Report 6361501-2 (Version None)
Quarter: 2009Q3

REPORT INFORMATION
  Report Type: 
  Country: None (occurrence: None)
  Receive Date: 20090918
  Receipt Date: 20090914
  Transmission Date: 20100115
  Serious: Yes (Other)
  Sender: FDA-Public Use
  Company Number: IT-AVENTIS-200920318GDDC

PATIENT
  Age: 57 Year
  Sex: Female

DRUGS (4)
  1. ARAVA [Suspect]
     Indication: RHEUMATOID ARTHRITIS
     Route: 048
     Dates: start: 20090202, end: 20090310
  2. NIMESULIDE [Suspect]
     Indication: RHEUMATOID ARTHRITIS
     Route: 048
     Dates: start: 20081115, end: 20090313
  3. TAREG [Concomitant]
     Indication: HYPERTENSION
     Route: 048
  4. ENBREL [Concomitant]
     Dates: start: 20080501, end: 20090501

REACTIONS (3)
  - EPISTAXIS [None]
  - HYPERTENSIVE CRISIS [None]
  - RECTAL HAEMORRHAGE [None]
